FAERS Safety Report 16255795 (Version 1)
Quarter: 2019Q2

REPORT INFORMATION
  Report Type: Spontaneous
  Country: FR (occurrence: FR)
  Receive Date: 20190430
  Receipt Date: 20190430
  Transmission Date: 20190711
  Serious: Yes (Other)
  Sender: FDA-Public Use
  Company Number: FR-TEVA-2019-FR-1043604

PATIENT
  Age: 53 Year
  Sex: Female

DRUGS (3)
  1. 5-FLUOROURACIL [Concomitant]
     Active Substance: FLUOROURACIL
     Indication: COLON CANCER METASTATIC
     Dosage: RECEIVED 35 CYCLES BETWEEN 2011 AND 2017
     Route: 065
  2. BEVACIZUMAB. [Concomitant]
     Active Substance: BEVACIZUMAB
     Indication: COLON CANCER METASTATIC
     Dosage: RECEIVED 35 CYCLES BETWEEN 2011 AND 2017
     Route: 065
  3. IRINOTECAN [Suspect]
     Active Substance: IRINOTECAN
     Indication: COLON CANCER METASTATIC
     Dosage: RECEIVED 35 CYCLES BETWEEN 2011 AND 2017
     Route: 065

REACTIONS (1)
  - Retinopathy [Recovering/Resolving]
